FAERS Safety Report 21091652 (Version 9)
Quarter: 2022Q4

REPORT INFORMATION
  Report Type: Spontaneous
  Country: US (occurrence: US)
  Receive Date: 20220717
  Receipt Date: 20221029
  Transmission Date: 20230113
  Serious: Yes (Death, Hospitalization, Other)
  Sender: FDA-Public Use
  Company Number: US-UNITED THERAPEUTICS-UNT-2022-013103

PATIENT
  Sex: Male
  Weight: 83.9 kg

DRUGS (11)
  1. REMODULIN [Suspect]
     Active Substance: TREPROSTINIL
     Indication: Pulmonary arterial hypertension
     Dosage: UNK, CONTINUING
     Route: 058
     Dates: start: 20220525, end: 20220830
  2. REMODULIN [Suspect]
     Active Substance: TREPROSTINIL
     Dosage: 0.0146 ?G/KG, CONTINUING
     Route: 058
     Dates: start: 2022
  3. REMODULIN [Suspect]
     Active Substance: TREPROSTINIL
     Dosage: 0.023 ?G/KG, CONTINUING
     Route: 058
     Dates: start: 2022
  4. REMODULIN [Suspect]
     Active Substance: TREPROSTINIL
     Dosage: UNK (DOSE DECREASED), CONTINUING
     Route: 058
     Dates: start: 2022
  5. REMODULIN [Suspect]
     Active Substance: TREPROSTINIL
     Dosage: 0.0209 ?G/KG, CONTINUING
     Route: 058
     Dates: start: 2022
  6. REMODULIN [Suspect]
     Active Substance: TREPROSTINIL
     Dosage: UNK (PUMP RATE 0.028 ML/HR]), CONTINUING
     Route: 058
     Dates: start: 2022
  7. REMODULIN [Suspect]
     Active Substance: TREPROSTINIL
     Dosage: 0.0314 ?G/KG, CONTINUING
     Route: 058
     Dates: start: 2022
  8. WARFARIN SODIUM [Suspect]
     Active Substance: WARFARIN SODIUM
     Indication: Product used for unknown indication
     Dosage: UNK
     Route: 065
     Dates: end: 2022
  9. ELIQUIS [Concomitant]
     Active Substance: APIXABAN
     Indication: Product used for unknown indication
     Dosage: UNK
     Route: 065
  10. ADCIRCA [Concomitant]
     Active Substance: TADALAFIL
     Indication: Pulmonary arterial hypertension
     Dosage: UNK
     Route: 065
  11. LETAIRIS [Concomitant]
     Active Substance: AMBRISENTAN
     Indication: Product used for unknown indication
     Dosage: UNK
     Route: 065

REACTIONS (26)
  - Pulmonary arterial hypertension [Fatal]
  - Dyspnoea [Fatal]
  - Abdominal pain upper [Fatal]
  - Oxygen consumption increased [Fatal]
  - Dyspnoea at rest [Fatal]
  - Infusion site thrombosis [Fatal]
  - Oxygen saturation decreased [Fatal]
  - Abdominal pain [Fatal]
  - Infusion site pain [Fatal]
  - Therapy non-responder [Fatal]
  - Abdominal discomfort [Fatal]
  - Influenza [Fatal]
  - Infusion site haemorrhage [Fatal]
  - Infusion site discharge [Fatal]
  - Purulent discharge [Fatal]
  - Infusion site induration [Fatal]
  - Headache [Fatal]
  - Infusion site infection [Fatal]
  - Chest discomfort [Fatal]
  - Fluid retention [Fatal]
  - Depression [Fatal]
  - Infusion site erythema [Fatal]
  - Device dislocation [Recovered/Resolved]
  - Pain [Recovered/Resolved]
  - Device malfunction [Recovered/Resolved]
  - Treatment noncompliance [Unknown]

NARRATIVE: CASE EVENT DATE: 20220101
